FAERS Safety Report 23206851 (Version 1)
Quarter: 2023Q4

REPORT INFORMATION
  Report Type: Spontaneous
  Country: SA (occurrence: SA)
  Receive Date: 20231120
  Receipt Date: 20231120
  Transmission Date: 20240109
  Serious: Yes (Disabling)
  Sender: FDA-Public Use
  Company Number: SA-MYLANLABS-2023M1122613

PATIENT
  Sex: Male

DRUGS (1)
  1. DETRUSITOL [Suspect]
     Active Substance: TOLTERODINE TARTRATE
     Indication: Bladder disorder
     Dosage: UNK
     Route: 065

REACTIONS (3)
  - Hypokinesia [Unknown]
  - Micturition urgency [Unknown]
  - Drug hypersensitivity [Unknown]
